FAERS Safety Report 5011273-9 (Version None)
Quarter: 2006Q2

REPORT INFORMATION
  Report Type: 
  Country: None (occurrence: None)
  Receive Date: 20060404
  Receipt Date: 20051228
  Transmission Date: 20061013
  Serious: No
  Sender: FDA-Public Use
  Company Number: US200512004346

PATIENT
  Sex: Female

DRUGS (2)
  1. CYMBALTA [Suspect]
  2. ADDERALL (AMFETAMINE ASPARTAT, AMFETAMINE SULFATE, DEXAMFETAMINE SACCH [Concomitant]

REACTIONS (1)
  - INTENTIONAL DRUG MISUSE [None]
